FAERS Safety Report 18845151 (Version 2)
Quarter: 2021Q1

REPORT INFORMATION
  Report Type: Spontaneous
  Country: NL (occurrence: NL)
  Receive Date: 20210204
  Receipt Date: 20210223
  Transmission Date: 20210419
  Serious: Yes (Other)
  Sender: FDA-Public Use
  Company Number: NL-BAYER-2021-044139

PATIENT
  Age: 5 Decade
  Sex: Female

DRUGS (2)
  1. MIRENA [Suspect]
     Active Substance: LEVONORGESTREL
     Indication: HORMONE LEVEL ABNORMAL
  2. MIRENA [Suspect]
     Active Substance: LEVONORGESTREL
     Indication: MENORRHAGIA
     Dosage: 20 ?G PER DAY CONTINUOUSLY
     Route: 015
     Dates: start: 201801, end: 20210205

REACTIONS (16)
  - Chest pain [Recovered/Resolved]
  - Blood pressure decreased [Recovered/Resolved]
  - Head discomfort [None]
  - Hypoxia [Recovered/Resolved]
  - Inflammation [Recovering/Resolving]
  - Palpitations [Recovered/Resolved]
  - Anxiety [Recovered/Resolved]
  - Irritability [None]
  - Cerebrovascular accident [None]
  - Coronary vein stenosis [None]
  - Panic attack [Recovered/Resolved]
  - Dyspnoea [Recovering/Resolving]
  - Crying [Recovered/Resolved]
  - Pericarditis [None]
  - Piloerection [Recovered/Resolved]
  - Fatigue [None]

NARRATIVE: CASE EVENT DATE: 2018
